FAERS Safety Report 7879649-X (Version None)
Quarter: 2011Q4

REPORT INFORMATION
  Report Type: 
  Country: None (occurrence: None)
  Receive Date: 20111101
  Receipt Date: 20111025
  Transmission Date: 20120403
  Serious: Yes (Hospitalization)
  Sender: FDA-Public Use
  Company Number: US-GLAXOSMITHKLINE-A0951404A

PATIENT
  Age: 34 Year
  Sex: Female

DRUGS (3)
  1. LETAIRIS [Concomitant]
  2. FLOLAN [Suspect]
     Indication: PULMONARY ARTERIAL HYPERTENSION
     Dosage: 41.5NGKM UNKNOWN
     Route: 065
     Dates: start: 20070125
  3. REVATIO [Concomitant]

REACTIONS (1)
  - SKIN INFECTION [None]
